FAERS Safety Report 4421688-5 (Version None)
Quarter: 2004Q3

REPORT INFORMATION
  Report Type: 
  Country: None (occurrence: None)
  Receive Date: 20040804
  Receipt Date: 20040719
  Transmission Date: 20050211
  Serious: Yes (Other)
  Sender: FDA-Public Use
  Company Number: DSA_80667_2004

PATIENT
  Age: 41 Year
  Sex: Female
  Weight: 48.0813 kg

DRUGS (13)
  1. XYREM [Suspect]
     Indication: HEADACHE
     Dosage: 9 ML TWICE NIGHTLY PO
     Route: 048
     Dates: start: 20040520, end: 20040525
  2. XYREM [Suspect]
     Indication: INSOMNIA
     Dosage: 9 ML TWICE NIGHTLY PO
     Route: 048
     Dates: start: 20040520, end: 20040525
  3. XYREM [Suspect]
     Indication: HEADACHE
     Dosage: 4.5 ML TWICE NIGHTLY PO
     Route: 048
  4. XYREM [Suspect]
     Indication: INSOMNIA
     Dosage: 4.5 ML TWICE NIGHTLY PO
     Route: 048
  5. XYREM [Suspect]
     Indication: HEADACHE
     Dosage: 4.5 ML TWICE NIGHTLY PO
     Route: 048
     Dates: start: 20040525, end: 20040615
  6. XYREM [Suspect]
     Indication: INSOMNIA
     Dosage: 4.5 ML TWICE NIGHTLY PO
     Route: 048
     Dates: start: 20040525, end: 20040615
  7. XYREM [Suspect]
     Indication: HEADACHE
     Dosage: 6 ML TWICE NIGHTLY PO
     Route: 048
     Dates: start: 20040615
  8. XYREM [Suspect]
     Indication: INSOMNIA
     Dosage: 6 ML TWICE NIGHTLY PO
     Route: 048
     Dates: start: 20040615
  9. XANAX [Concomitant]
  10. DEMEROL [Concomitant]
  11. THORAZINE [Concomitant]
  12. TRAZODONE [Concomitant]
  13. BIVELLE [Concomitant]

REACTIONS (29)
  - ABNORMAL BEHAVIOUR [None]
  - ASTHENIA [None]
  - BALANCE DISORDER [None]
  - CHEST DISCOMFORT [None]
  - CIRCULATORY COLLAPSE [None]
  - CONFUSIONAL STATE [None]
  - CRYING [None]
  - DEHYDRATION [None]
  - DIARRHOEA [None]
  - DIFFICULTY IN WALKING [None]
  - DISORIENTATION [None]
  - DRUG EFFECT DECREASED [None]
  - DYSKINESIA [None]
  - DYSPNOEA [None]
  - EATING DISORDER [None]
  - HALLUCINATION [None]
  - HYPOAESTHESIA [None]
  - INCOHERENT [None]
  - INSOMNIA [None]
  - LOSS OF CONSCIOUSNESS [None]
  - MEDICATION ERROR [None]
  - MOBILITY DECREASED [None]
  - MOTOR DYSFUNCTION [None]
  - MUSCLE SPASMS [None]
  - NAUSEA [None]
  - PAIN [None]
  - SOMNOLENCE [None]
  - SPEECH DISORDER [None]
  - VOMITING [None]
